FAERS Safety Report 25310707 (Version 2)
Quarter: 2025Q3

REPORT INFORMATION
  Report Type: Spontaneous
  Country: US (occurrence: US)
  Receive Date: 20250514
  Receipt Date: 20250729
  Transmission Date: 20251020
  Serious: Yes (Other)
  Sender: NOVO NORDISK
  Company Number: US-NOVOPROD-1418025

PATIENT
  Age: 68 Year
  Sex: Male

DRUGS (5)
  1. NOVOLOG [Suspect]
     Active Substance: INSULIN ASPART
     Indication: Type 2 diabetes mellitus
     Route: 058
     Dates: start: 20250409
  2. TACROLIMUS [Concomitant]
     Active Substance: TACROLIMUS
     Indication: Organ transplant
     Dates: start: 20140714
  3. NYSTATIN [Concomitant]
     Active Substance: NYSTATIN
     Indication: Organ transplant
  4. PREDNISONE [Concomitant]
     Active Substance: PREDNISONE
     Indication: Organ transplant
     Dates: start: 20140714
  5. BARACLUDE [Concomitant]
     Active Substance: ENTECAVIR
     Indication: Organ transplant
     Dates: start: 20140714

REACTIONS (2)
  - Blood glucose increased [Recovering/Resolving]
  - Device malfunction [Unknown]
